FAERS Safety Report 8899349 (Version 1)
Quarter: 2012Q4

REPORT INFORMATION
  Report Type: 
  Country: US (occurrence: US)
  Receive Date: 20121108
  Receipt Date: 20121108
  Transmission Date: 20130627
  Serious: No
  Sender: FDA-Public Use
  Company Number: US-AMGEN-USASP2012026956

PATIENT
  Age: 49 Year
  Sex: Female
  Weight: 68.03 kg

DRUGS (9)
  1. ENBREL [Suspect]
     Indication: RHEUMATOID ARTHRITIS
     Dosage: 50 mg, qwk
     Route: 058
  2. FUROSEMIDE [Concomitant]
     Dosage: 20 mg, UNK
     Route: 048
  3. METHOTREXATE [Concomitant]
     Dosage: 2.5 mg, UNK
     Route: 048
  4. VITAMIN C                          /00008001/ [Concomitant]
     Dosage: 500 mg, UNK
     Route: 048
  5. MEDROXYPROGESTERON ACETATE [Concomitant]
     Dosage: 2.5 mg, UNK
     Route: 048
  6. ESTRADIOL [Concomitant]
     Dosage: 0.5 mg, UNK
     Route: 048
  7. OMEGA 3                            /01334101/ [Concomitant]
     Route: 048
  8. VITAMIN D /00107901/ [Concomitant]
     Route: 048
  9. FOLIC ACID [Concomitant]
     Route: 048

REACTIONS (4)
  - Abdominal pain [Recovered/Resolved]
  - Nausea [Recovered/Resolved]
  - Chills [Recovered/Resolved]
  - Pyrexia [Recovered/Resolved]
